FAERS Safety Report 5370540-X (Version None)
Quarter: 2007Q2

REPORT INFORMATION
  Report Type: 
  Country: None (occurrence: None)
  Receive Date: 20070622
  Receipt Date: 20070601
  Transmission Date: 20071010
  Serious: Yes (Other)
  Sender: FDA-Public Use
  Company Number: 8023731

PATIENT
  Sex: Female

DRUGS (7)
  1. KEPPRA [Suspect]
     Indication: EPILEPSY
  2. CARBAMAZEPINE [Concomitant]
  3. ETHOSUXIMIDE [Concomitant]
  4. GABAPENTIN [Concomitant]
  5. LAMOTRIGINE [Concomitant]
  6. TOPIRAMATE [Concomitant]
  7. STEROIDS [Concomitant]

REACTIONS (1)
  - STEVENS-JOHNSON SYNDROME [None]
